FAERS Safety Report 14596314 (Version 1)
Quarter: 2018Q1

REPORT INFORMATION
  Report Type: Spontaneous
  Country: IT (occurrence: IT)
  Receive Date: 20180303
  Receipt Date: 20180303
  Transmission Date: 20180509
  Serious: Yes (Hospitalization)
  Sender: FDA-Public Use
  Company Number: IT-TEVA-2018-IT-862286

PATIENT
  Age: 83 Year
  Sex: Female

DRUGS (6)
  1. LANTUS [Concomitant]
     Active Substance: INSULIN GLARGINE
  2. TRIATEC 2,5 MG COMPRESSE [Concomitant]
  3. HUMALOG [Concomitant]
     Active Substance: INSULIN LISPRO
  4. OLANZAPINE. [Suspect]
     Active Substance: OLANZAPINE
     Indication: PSYCHOTIC DISORDER
     Route: 048
     Dates: start: 20170101, end: 20170706
  5. EUTIROX 100 MICROGRAMMI COMPRESSE [Concomitant]
     Active Substance: LEVOTHYROXINE SODIUM
  6. TRITTICO 75 MG COMPRESSE A RILASCIO PROLUNGATO [Concomitant]

REACTIONS (1)
  - Psychomotor hyperactivity [Unknown]

NARRATIVE: CASE EVENT DATE: 20170706
